FAERS Safety Report 7458736-4 (Version None)
Quarter: 2011Q2

REPORT INFORMATION
  Report Type: 
  Country: None (occurrence: None)
  Receive Date: 20110504
  Receipt Date: 20110428
  Transmission Date: 20111010
  Serious: Yes (Other)
  Sender: FDA-Public Use
  Company Number: GB-EISAI INC-E2090-01592-SPO-GB

PATIENT
  Age: 21 Year
  Sex: Female

DRUGS (3)
  1. ZONEGRAN [Suspect]
     Route: 048
     Dates: start: 20110101
  2. ZONEGRAN [Suspect]
     Route: 048
     Dates: start: 20100101, end: 20110101
  3. LACOSAMIDE [Concomitant]

REACTIONS (1)
  - RETINAL HAEMORRHAGE [None]
